FAERS Safety Report 7417636-6 (Version None)
Quarter: 2011Q2

REPORT INFORMATION
  Report Type: 
  Country: None (occurrence: None)
  Receive Date: 20110412
  Receipt Date: 20110412
  Transmission Date: 20111010
  Serious: No
  Sender: FDA-Public Use
  Company Number: None

PATIENT
  Age: 67 Year
  Sex: Male
  Weight: 90 kg

DRUGS (1)
  1. METHOTREXATE [Suspect]
     Dosage: 10 MG QWEEK PO
     Route: 048
     Dates: start: 20101214, end: 20110201

REACTIONS (1)
  - HEPATIC ENZYME ABNORMAL [None]
